FAERS Safety Report 12297096 (Version 3)
Quarter: 2016Q4

REPORT INFORMATION
  Report Type: Spontaneous
  Country: US (occurrence: US)
  Receive Date: 20160422
  Receipt Date: 20161108
  Transmission Date: 20170207
  Serious: No
  Sender: FDA-Public Use
  Company Number: US-GLAXOSMITHKLINE-US2016056528

PATIENT
  Age: 72 Year
  Sex: Female

DRUGS (3)
  1. ASPIRIN (BABY) [Concomitant]
     Active Substance: ASPIRIN
  2. VENTOLIN HFA [Suspect]
     Active Substance: ALBUTEROL SULFATE
     Indication: ASTHMA
     Dosage: UNK
     Route: 055
  3. PAXIL [Concomitant]
     Active Substance: PAROXETINE HYDROCHLORIDE

REACTIONS (7)
  - Dyspnoea exertional [Recovering/Resolving]
  - Malaise [Recovering/Resolving]
  - Product quality issue [Unknown]
  - Dyspnoea [Recovering/Resolving]
  - Device use error [Recovered/Resolved]
  - Wheezing [Recovering/Resolving]
  - Joint swelling [Recovering/Resolving]

NARRATIVE: CASE EVENT DATE: 20160416
